FAERS Safety Report 15640426 (Version 2)
Quarter: 2018Q4

REPORT INFORMATION
  Report Type: Spontaneous
  Country: US (occurrence: US)
  Receive Date: 20181120
  Receipt Date: 20181127
  Transmission Date: 20190205
  Serious: No
  Sender: FDA-Public Use
  Company Number: US-PFIZER INC-2018474228

PATIENT
  Age: 38 Year
  Sex: Male
  Weight: 98.43 kg

DRUGS (1)
  1. GABAPENTIN. [Suspect]
     Active Substance: GABAPENTIN
     Indication: NEURALGIA
     Dosage: 300 MG, UNK

REACTIONS (4)
  - Drug ineffective for unapproved indication [Unknown]
  - Insomnia [Unknown]
  - Torticollis [Unknown]
  - Feeding disorder [Unknown]
